FAERS Safety Report 6099690-X (Version None)
Quarter: 2009Q1

REPORT INFORMATION
  Report Type: 
  Country: None (occurrence: None)
  Receive Date: 20090303
  Receipt Date: 20090128
  Transmission Date: 20090719
  Serious: No
  Sender: FDA-Public Use
  Company Number: US-BAYER-200910330BCC

PATIENT
  Age: 80 Year
  Sex: Male
  Weight: 63 kg

DRUGS (7)
  1. ALEVE [Suspect]
     Indication: ABDOMINAL PAIN UPPER
     Dosage: UNIT DOSE: 220 MG
     Dates: start: 20070101
  2. OXYCODONE [Concomitant]
  3. TEMAZEPAM [Concomitant]
  4. EFFEXOR [Concomitant]
  5. WELLBUTRIN [Concomitant]
  6. ARICEPT [Concomitant]
  7. WARFARIN SODIUM [Concomitant]

REACTIONS (5)
  - ABDOMINAL PAIN UPPER [None]
  - ARTHRITIS [None]
  - BACK PAIN [None]
  - FATIGUE [None]
  - PAIN IN EXTREMITY [None]
